FAERS Safety Report 5309086-3 (Version None)
Quarter: 2007Q2

REPORT INFORMATION
  Report Type: 
  Country: None (occurrence: None)
  Receive Date: 20070420
  Receipt Date: 20070329
  Transmission Date: 20071010
  Serious: Yes (Death)
  Sender: FDA-Public Use
  Company Number: E2B_00010326

PATIENT
  Age: 70 Year
  Sex: Female

DRUGS (10)
  1. METFORMIN  (TABLET) ( METFORMIN ) [Suspect]
     Indication: DIABETES MELLITUS
     Dosage: 500 + 1000 MG (1500 MG, 1 IN 1 D); ORAL
     Route: 048
  2. WARFARIN SODIUM [Concomitant]
  3. AMARYL [Concomitant]
  4. CARVEDILOL [Concomitant]
  5. ZYRTEC [Concomitant]
  6. ZOCOR [Concomitant]
  7. LEVOTHYROXINE SODIUM [Concomitant]
  8. CENTYL (BENDROFLUNETHIAZIDE) [Concomitant]
  9. BUMETANIDE [Concomitant]
  10. IRBESARTAN [Concomitant]

REACTIONS (4)
  - BASE EXCESS [None]
  - DIARRHOEA [None]
  - LACTIC ACIDOSIS [None]
  - RENAL FAILURE [None]
